FAERS Safety Report 24189694 (Version 1)
Quarter: 2024Q3

REPORT INFORMATION
  Report Type: Spontaneous
  Country: CN (occurrence: CN)
  Receive Date: 20240808
  Receipt Date: 20240808
  Transmission Date: 20241017
  Serious: Yes (Life-Threatening, Hospitalization)
  Sender: ROCHE
  Company Number: CN-ROCHE-10000047081

PATIENT
  Age: 78 Year
  Sex: Female
  Weight: 51 kg

DRUGS (3)
  1. HERCEPTIN [Suspect]
     Active Substance: TRASTUZUMAB
     Indication: Neoplasm
     Route: 042
     Dates: start: 20240712, end: 20240712
  2. PYROTINIB [Suspect]
     Active Substance: PYROTINIB
     Indication: Neoplasm
     Route: 048
     Dates: start: 20240712, end: 20240719
  3. DOCETAXEL [Suspect]
     Active Substance: DOCETAXEL\DOCETAXEL ANHYDROUS
     Indication: Neoplasm
     Route: 042
     Dates: start: 20240712, end: 20240712

REACTIONS (3)
  - Diarrhoea [Recovering/Resolving]
  - Asthenia [Recovering/Resolving]
  - Myelosuppression [Recovering/Resolving]

NARRATIVE: CASE EVENT DATE: 20240715
